FAERS Safety Report 5087958-5 (Version None)
Quarter: 2006Q3

REPORT INFORMATION
  Report Type: 
  Country: None (occurrence: None)
  Receive Date: 20060821
  Receipt Date: 20060804
  Transmission Date: 20061208
  Serious: Yes (Other)
  Sender: FDA-Public Use
  Company Number: TRP_0844_2006

PATIENT
  Age: 54 Year
  Sex: Female

DRUGS (6)
  1. RIBASPHERE [Suspect]
     Indication: HEPATITIS C
     Dosage: DF PO
     Route: 048
     Dates: start: 20060428
  2. PEG-INTRON [Suspect]
     Indication: HEPATITIS C
     Dosage: DF SC
     Route: 058
     Dates: start: 20060428
  3. AMOXICILLIN [Concomitant]
  4. PROTONIX [Concomitant]
  5. ZOLOFT [Concomitant]
  6. ZYRTEC [Concomitant]

REACTIONS (8)
  - ASTHENIA [None]
  - DEAFNESS UNILATERAL [None]
  - DIARRHOEA [None]
  - DIZZINESS [None]
  - DYSPNOEA EXERTIONAL [None]
  - EAR CONGESTION [None]
  - EAR INFECTION [None]
  - FATIGUE [None]
